FAERS Safety Report 21133790 (Version 1)
Quarter: 2022Q3

REPORT INFORMATION
  Report Type: Spontaneous
  Country: US (occurrence: US)
  Receive Date: 20220726
  Receipt Date: 20220726
  Transmission Date: 20221027
  Serious: No
  Sender: FDA-Public Use
  Company Number: US-TAKEDA-2022TUS050179

PATIENT
  Age: 17 Year
  Sex: Male
  Weight: 75 kg

DRUGS (3)
  1. ENTYVIO [Suspect]
     Active Substance: VEDOLIZUMAB
     Indication: Colitis ulcerative
     Dosage: 300 MILLIGRAM, Q4WEEKS
     Route: 042
     Dates: start: 201901, end: 20211119
  2. ENTYVIO [Suspect]
     Active Substance: VEDOLIZUMAB
     Indication: Coeliac disease
  3. ENTYVIO [Suspect]
     Active Substance: VEDOLIZUMAB
     Indication: Type 1 diabetes mellitus

REACTIONS (4)
  - No adverse event [Unknown]
  - Product dose omission issue [Unknown]
  - Product use in unapproved indication [Unknown]
  - Off label use [Unknown]

NARRATIVE: CASE EVENT DATE: 20190101
